FAERS Safety Report 10601716 (Version 2)
Quarter: 2014Q4

REPORT INFORMATION
  Report Type: Spontaneous
  Country: US (occurrence: US)
  Receive Date: 20141124
  Receipt Date: 20141125
  Transmission Date: 20150529
  Serious: No
  Sender: FDA-Public Use
  Company Number: US-PFIZER INC-2014318342

PATIENT
  Age: 55 Year
  Sex: Female
  Weight: 84 kg

DRUGS (2)
  1. GEMFIBROZIL. [Suspect]
     Active Substance: GEMFIBROZIL
     Dosage: UNK
     Dates: end: 201406
  2. SIMVASTATIN. [Interacting]
     Active Substance: SIMVASTATIN
     Indication: BLOOD CHOLESTEROL
     Dosage: UNK
     Dates: end: 201406

REACTIONS (2)
  - Labelled drug-drug interaction medication error [Unknown]
  - Liver disorder [Unknown]
